FAERS Safety Report 4786665-3 (Version None)
Quarter: 2005Q3

REPORT INFORMATION
  Report Type: 
  Country: None (occurrence: None)
  Receive Date: 20050930
  Receipt Date: 20050913
  Transmission Date: 20060218
  Serious: Yes (Hospitalization, Other)
  Sender: FDA-Public Use
  Company Number: USA0509108005

PATIENT
  Age: 61 Year
  Sex: Male

DRUGS (6)
  1. ZYPREXA [Suspect]
     Indication: SCHIZOPHRENIA
     Dosage: 30 MG DAY
     Dates: start: 19990101
  2. ZOLOFT [Concomitant]
  3. DIAZEPAM [Concomitant]
  4. ENALAPRIL [Concomitant]
  5. TRICOR (FENOFIBRTE) [Concomitant]
  6. NAMENDA [Concomitant]

REACTIONS (2)
  - CHRONIC OBSTRUCTIVE PULMONARY DISEASE [None]
  - TONGUE OEDEMA [None]
